FAERS Safety Report 21723080 (Version 3)
Quarter: 2023Q1

REPORT INFORMATION
  Report Type: Spontaneous
  Country: US (occurrence: US)
  Receive Date: 20221213
  Receipt Date: 20230308
  Transmission Date: 20230417
  Serious: No
  Sender: FDA-Public Use
  Company Number: US-PFIZER INC-PV202200120061

PATIENT
  Age: 24 Year
  Sex: Female
  Weight: 60.317 kg

DRUGS (3)
  1. MIDAZOLAM [Suspect]
     Active Substance: MIDAZOLAM
     Indication: Sedative therapy
     Dosage: 27.5 MG, SINGLE (2.5 MG INCREMENTS)
     Route: 042
     Dates: start: 20221130, end: 20221130
  2. MIDAZOLAM [Suspect]
     Active Substance: MIDAZOLAM
     Indication: Dental care
     Dosage: UNK
  3. FENTANYL CITRATE [Concomitant]
     Active Substance: FENTANYL CITRATE
     Indication: Dental care
     Dosage: 100 UG

REACTIONS (2)
  - Therapeutic product effect incomplete [Unknown]
  - Intentional overdose [Unknown]

NARRATIVE: CASE EVENT DATE: 20221130
